FAERS Safety Report 9169199 (Version 2)
Quarter: 2013Q2

REPORT INFORMATION
  Report Type: Spontaneous
  Country: US (occurrence: US)
  Receive Date: 20130318
  Receipt Date: 20130422
  Transmission Date: 20140414
  Serious: Yes (Death)
  Sender: FDA-Public Use
  Company Number: US-BRISTOL-MYERS SQUIBB COMPANY-17481045

PATIENT
  Age: 67 Year
  Sex: Male

DRUGS (6)
  1. ELIQUIS [Suspect]
     Indication: ATRIAL FIBRILLATION
  2. ASPIRIN [Concomitant]
  3. LISINOPRIL [Concomitant]
  4. METHOTREXATE [Concomitant]
  5. FOLIC ACID [Concomitant]
  6. DULOXETINE HCL [Concomitant]

REACTIONS (1)
  - Death [Fatal]
